FAERS Safety Report 5229881-9 (Version None)
Quarter: 2007Q1

REPORT INFORMATION
  Report Type: 
  Country: None (occurrence: None)
  Receive Date: 20070206
  Receipt Date: 20060613
  Transmission Date: 20070707
  Serious: No
  Sender: FDA-Public Use
  Company Number: US-GLAXOSMITHKLINE-A0608859A

PATIENT
  Age: 24 Year
  Sex: Male

DRUGS (5)
  1. PAXIL [Suspect]
     Route: 048
  2. PAXIL CR [Suspect]
     Route: 048
  3. XANAX [Concomitant]
  4. ALBUTEROL [Concomitant]
  5. EPINEPHRINE [Concomitant]

REACTIONS (6)
  - DEPRESSED MOOD [None]
  - EMOTIONAL DISORDER [None]
  - LIBIDO DECREASED [None]
  - RESTLESS LEGS SYNDROME [None]
  - TIC [None]
  - TREMOR [None]
